FAERS Safety Report 9993491 (Version 3)
Quarter: 2014Q2

REPORT INFORMATION
  Report Type: Report from Study
  Country: US (occurrence: US)
  Receive Date: 20140310
  Receipt Date: 20140428
  Transmission Date: 20141212
  Serious: Yes (Hospitalization)
  Sender: FDA-Public Use
  Company Number: PHEH2014US004743

PATIENT
  Age: 71 Year
  Sex: Male

DRUGS (3)
  1. EXJADE [Suspect]
     Indication: ANAEMIA
     Dosage: 1500 MG, DAILY
     Route: 048
  2. EXJADE [Suspect]
     Indication: RENAL FAILURE CHRONIC
     Dosage: 1500 MG, EVERY MORNING
     Route: 048
  3. EXJADE [Suspect]
     Indication: IRON OVERLOAD

REACTIONS (3)
  - Respiratory distress [Unknown]
  - Chronic obstructive pulmonary disease [Recovering/Resolving]
  - Malaise [Unknown]
